FAERS Safety Report 4846964-3 (Version None)
Quarter: 2005Q4

REPORT INFORMATION
  Report Type: 
  Country: None (occurrence: None)
  Receive Date: 20051207
  Receipt Date: 20051129
  Transmission Date: 20060501
  Serious: Yes (Other)
  Sender: FDA-Public Use
  Company Number: US-JNJFOC-20051200717

PATIENT
  Age: 78 Year
  Sex: Female

DRUGS (5)
  1. TYLENOL (CAPLET) [Suspect]
     Route: 048
  2. TYLENOL (CAPLET) [Suspect]
     Indication: ARTHRITIS
     Route: 048
  3. LIPITOR [Concomitant]
  4. AVALIDE [Concomitant]
  5. AVALIDE [Concomitant]

REACTIONS (1)
  - FOREIGN BODY TRAUMA [None]
